FAERS Safety Report 22030983 (Version 3)
Quarter: 2023Q1

REPORT INFORMATION
  Report Type: Spontaneous
  Country: CN (occurrence: CN)
  Receive Date: 20230223
  Receipt Date: 20230323
  Transmission Date: 20230418
  Serious: Yes (Hospitalization)
  Sender: FDA-Public Use
  Company Number: CN-BIOGEN-2022BI01167312

PATIENT
  Age: 18 Year
  Sex: Male

DRUGS (5)
  1. SPINRAZA [Suspect]
     Active Substance: NUSINERSEN
     Indication: Spinal muscular atrophy
     Route: 050
     Dates: start: 20220408
  2. SPINRAZA [Suspect]
     Active Substance: NUSINERSEN
     Route: 050
     Dates: start: 20220422
  3. SPINRAZA [Suspect]
     Active Substance: NUSINERSEN
     Route: 050
     Dates: start: 20220506
  4. SPINRAZA [Suspect]
     Active Substance: NUSINERSEN
     Route: 050
     Dates: start: 20220614
  5. SPINRAZA [Suspect]
     Active Substance: NUSINERSEN
     Dosage: 5TH DOSE
     Route: 050
     Dates: start: 20221125

REACTIONS (4)
  - Mania [Unknown]
  - Cognitive disorder [Not Recovered/Not Resolved]
  - Depressed mood [Not Recovered/Not Resolved]
  - Muscular weakness [Not Recovered/Not Resolved]

NARRATIVE: CASE EVENT DATE: 20221001
